FAERS Safety Report 13667622 (Version 6)
Quarter: 2018Q3

REPORT INFORMATION
  Report Type: Report from Study
  Country: FR (occurrence: FR)
  Receive Date: 20170620
  Receipt Date: 20180904
  Transmission Date: 20181010
  Serious: Yes (Death, Hospitalization, Other)
  Sender: FDA-Public Use
  Company Number: FR-BRISTOL-MYERS SQUIBB COMPANY-BMS-2017-051740

PATIENT
  Age: 48 Year
  Sex: Female

DRUGS (4)
  1. NIVOLUMAB [Suspect]
     Active Substance: NIVOLUMAB
     Indication: LUNG NEOPLASM MALIGNANT
     Dosage: 140 MG, Q2WK
     Route: 042
     Dates: start: 20170331
  2. OXYNORM [Concomitant]
     Active Substance: OXYCODONE HYDROCHLORIDE
     Indication: PRODUCT USED FOR UNKNOWN INDICATION
     Dosage: 5 MG, UNK
     Route: 065
  3. DOLIPRANE [Concomitant]
     Active Substance: ACETAMINOPHEN
     Indication: PRODUCT USED FOR UNKNOWN INDICATION
     Route: 065
  4. OXYCODONE [Concomitant]
     Active Substance: OXYCODONE
     Indication: PRODUCT USED FOR UNKNOWN INDICATION
     Dosage: UNK, BID
     Route: 065

REACTIONS (13)
  - Lymphangiosis carcinomatosa [Unknown]
  - Pneumothorax [Unknown]
  - Dyspnoea [Unknown]
  - Respiratory failure [Unknown]
  - Atelectasis [Unknown]
  - Thoracic cavity drainage [Unknown]
  - Malignant neoplasm progression [Fatal]
  - Sepsis [Unknown]
  - Pleural effusion [Unknown]
  - Anaemia [Unknown]
  - Packed red blood cell transfusion [Unknown]
  - Tumour associated fever [Unknown]
  - Respiratory distress [Fatal]

NARRATIVE: CASE EVENT DATE: 20170518
